FAERS Safety Report 19002791 (Version 10)
Quarter: 2022Q3

REPORT INFORMATION
  Report Type: Spontaneous
  Country: IN (occurrence: IN)
  Receive Date: 20210312
  Receipt Date: 20220811
  Transmission Date: 20221027
  Serious: Yes (Death, Other)
  Sender: FDA-Public Use
  Company Number: IN-PFIZER INC-2021224905

PATIENT
  Age: 67 Year
  Sex: Female

DRUGS (3)
  1. PALBOCICLIB [Suspect]
     Active Substance: PALBOCICLIB
     Indication: Breast cancer metastatic
     Dosage: 125 MG, 1X/DAY
     Route: 048
     Dates: start: 20201210, end: 20210817
  2. LETALL [Concomitant]
     Dosage: 2.5 MG, 1X/DAY
  3. PANTOPRAZOLE SODIUM [Concomitant]
     Active Substance: PANTOPRAZOLE SODIUM

REACTIONS (17)
  - Death [Fatal]
  - Haemorrhage [Unknown]
  - Weight decreased [Unknown]
  - Peripheral swelling [Unknown]
  - Hypokinesia [Unknown]
  - Renal pain [Unknown]
  - Hepatic pain [Unknown]
  - Insomnia [Unknown]
  - COVID-19 [Recovered/Resolved]
  - White blood cell count increased [Unknown]
  - Dyspnoea [Unknown]
  - Neoplasm progression [Unknown]
  - Haemoglobin decreased [Unknown]
  - Platelet count decreased [Unknown]
  - White blood cell count decreased [Unknown]
  - Infection [Unknown]
  - Eating disorder [Unknown]

NARRATIVE: CASE EVENT DATE: 20220728
